FAERS Safety Report 6940933-5 (Version None)
Quarter: 2010Q3

REPORT INFORMATION
  Report Type: 
  Country: None (occurrence: None)
  Receive Date: 20100825
  Receipt Date: 20100817
  Transmission Date: 20110219
  Serious: Yes (Hospitalization)
  Sender: FDA-Public Use
  Company Number: A0800841A

PATIENT
  Age: 66 Year
  Sex: Male
  Weight: 100 kg

DRUGS (9)
  1. AVANDIA [Suspect]
     Indication: DIABETES MELLITUS
     Dosage: 8MG PER DAY
     Route: 048
     Dates: start: 20070312, end: 20080101
  2. GLIPIZIDE [Concomitant]
  3. VYTORIN [Concomitant]
  4. METFORMIN HCL [Concomitant]
     Dates: end: 20080109
  5. FLOMAX [Concomitant]
  6. FOSINOPRIL SODIUM [Concomitant]
  7. SERTRALINE HYDROCHLORIDE [Concomitant]
  8. VYTORIN [Concomitant]
  9. HYDROCHLOROTHIAZIDE [Concomitant]

REACTIONS (2)
  - HYPOXIC-ISCHAEMIC ENCEPHALOPATHY [None]
  - MYOCARDIAL INFARCTION [None]
